FAERS Safety Report 6753743-9 (Version None)
Quarter: 2010Q2

REPORT INFORMATION
  Report Type: 
  Country: None (occurrence: None)
  Receive Date: 20100520
  Receipt Date: 20090728
  Transmission Date: 20101027
  Serious: Yes (Other)
  Sender: FDA-Public Use
  Company Number: 2009193774

PATIENT
  Age: 64 Year
  Sex: Female
  Weight: 95 kg

DRUGS (4)
  1. PROVERA [Suspect]
     Indication: HORMONE REPLACEMENT THERAPY
     Dosage: , ORAL
     Route: 048
     Dates: start: 19950101, end: 19971201
  2. PREMARIN [Suspect]
     Indication: HORMONE REPLACEMENT THERAPY
     Dates: start: 19950101, end: 19971201
  3. PREMPRO [Suspect]
     Indication: HORMONE REPLACEMENT THERAPY
     Dates: start: 19980101, end: 20001201
  4. COMBIPATCH [Suspect]
     Indication: HORMONE REPLACEMENT THERAPY
     Dates: start: 20010124, end: 20050103

REACTIONS (1)
  - BREAST CANCER FEMALE [None]
